FAERS Safety Report 4564641-3 (Version None)
Quarter: 2005Q1

REPORT INFORMATION
  Report Type: 
  Country: None (occurrence: None)
  Receive Date: 20050126
  Receipt Date: 20050107
  Transmission Date: 20050727
  Serious: Yes (Hospitalization)
  Sender: FDA-Public Use
  Company Number: US_0501110160

PATIENT
  Age: 22 Year
  Sex: Female

DRUGS (6)
  1. OLANZAPINE [Suspect]
     Indication: BIPOLAR I DISORDER
     Dosage: 15 MG DAY
  2. CARBAMAZEPINE [Concomitant]
  3. HALOPERIDOL [Concomitant]
  4. MIDAZOLAM HCL [Concomitant]
  5. LORAZEPAM [Concomitant]
  6. ORAL CONTRACEPTIVE NOS [Concomitant]

REACTIONS (7)
  - COORDINATION ABNORMAL [None]
  - DIPLOPIA [None]
  - DIZZINESS [None]
  - DRUG LEVEL INCREASED [None]
  - DRUG TOXICITY [None]
  - TACHYCARDIA [None]
  - VOMITING [None]
